FAERS Safety Report 4586375-1 (Version None)
Quarter: 2005Q1

REPORT INFORMATION
  Report Type: 
  Country: None (occurrence: None)
  Receive Date: 20050125
  Receipt Date: 20040909
  Transmission Date: 20050727
  Serious: No
  Sender: FDA-Public Use
  Company Number: USA040977789

PATIENT
  Age: 83 Year
  Sex: Female
  Weight: 65 kg

DRUGS (4)
  1. FORTEO [Suspect]
     Indication: OSTEOPOROSIS
     Dosage: 20 UG/1/DAY
     Dates: start: 20040827
  2. EVISTA [Suspect]
     Dosage: 60 MG/1 DAY
  3. HYDROCODONE W/APAP [Concomitant]
  4. CALCIM WITH VITAMIN D [Concomitant]

REACTIONS (4)
  - BACK PAIN [None]
  - DYSPNOEA [None]
  - HERNIA PAIN [None]
  - INITIAL INSOMNIA [None]
